FAERS Safety Report 6022635-5 (Version None)
Quarter: 2008Q4

REPORT INFORMATION
  Report Type: 
  Country: None (occurrence: None)
  Receive Date: 20081223
  Receipt Date: 20081219
  Transmission Date: 20090506
  Serious: Yes (Death)
  Sender: FDA-Public Use
  Company Number: ENTC2008-0420

PATIENT
  Age: 79 Year
  Sex: Female

DRUGS (1)
  1. STALEVO 100 [Suspect]
     Indication: PARKINSON'S DISEASE
     Dosage: 100/25/200 MG, 3 TAB/DAY ORAL
     Route: 048
     Dates: start: 20040301

REACTIONS (1)
  - INFECTION [None]
